FAERS Safety Report 8592975-4 (Version None)
Quarter: 2012Q3

REPORT INFORMATION
  Report Type: 
  Country: None (occurrence: None)
  Receive Date: 20120814
  Receipt Date: 20120810
  Transmission Date: 20120928
  Serious: Yes (Hospitalization, Disabling, Other)
  Sender: FDA-Public Use
  Company Number: US-009507513-2011SP051912

PATIENT

DRUGS (5)
  1. CALCIUM (UNSPECIFIED) [Concomitant]
     Indication: MEDICAL DIET
     Dosage: UNK UNK, QD
  2. FOLIC ACID [Concomitant]
     Indication: MEDICAL DIET
     Dosage: UNK UNK, QD
  3. VITAMINS (UNSPECIFIED) [Concomitant]
     Indication: MEDICAL DIET
     Dosage: UNK UNK, QD
  4. NUVARING [Suspect]
     Indication: CONTRACEPTION
     Dates: start: 20101104, end: 20101204
  5. CYTOMEL [Concomitant]
     Indication: HYPOTHYROIDISM
     Dosage: 100 ?G, QD
     Dates: start: 20060101

REACTIONS (9)
  - CARDIAC MURMUR [None]
  - CEREBRAL VENOUS THROMBOSIS [None]
  - INSOMNIA [None]
  - PARANOIA [None]
  - COMA [None]
  - DRUG ABUSE [None]
  - ANTICOAGULATION DRUG LEVEL BELOW THERAPEUTIC [None]
  - MUSCLE TIGHTNESS [None]
  - DEPRESSION [None]
